FAERS Safety Report 4752153-3 (Version None)
Quarter: 2005Q3

REPORT INFORMATION
  Report Type: 
  Country: None (occurrence: None)
  Receive Date: 20050824
  Receipt Date: 20050824
  Transmission Date: 20060218
  Serious: Yes (Other)
  Sender: FDA-Public Use
  Company Number: None

PATIENT
  Sex: Female
  Weight: 58.9676 kg

DRUGS (3)
  1. REMERON [Suspect]
     Indication: ADJUSTMENT DISORDER
     Dosage: 30 MG QHS
     Dates: start: 20050614
  2. REMERON [Suspect]
     Indication: MAJOR DEPRESSION
     Dosage: 30 MG QHS
     Dates: start: 20050614
  3. SEROQUEL [Concomitant]

REACTIONS (2)
  - MALAISE [None]
  - NAUSEA [None]
